FAERS Safety Report 13688023 (Version 2)
Quarter: 2020Q2

REPORT INFORMATION
  Report Type: Other
  Country: None (occurrence: TH)
  Receive Date: 20170626
  Receipt Date: 20200424
  Transmission Date: 20200713
  Serious: Yes (Hospitalization)
  Sender: FDA-Public Use
  Company Number: TH-ORION CORPORATION ORION PHARMA-ENT 2017-0101

PATIENT
  Age: 64 Year
  Sex: Male

DRUGS (5)
  1. PIRIBEDIL [Suspect]
     Active Substance: PIRIBEDIL
     Indication: PARKINSON^S DISEASE
     Route: 065
  2. ENTACAPONE. [Suspect]
     Active Substance: ENTACAPONE
     Indication: PARKINSON^S DISEASE
     Route: 065
  3. BENZHEXOL [Suspect]
     Active Substance: TRIHEXYPHENIDYL
     Indication: PARKINSON^S DISEASE
     Route: 065
  4. LEVODOPA BENSERAZIDE [Suspect]
     Active Substance: BENSERAZIDE\LEVODOPA
     Indication: PARKINSON^S DISEASE
     Route: 065
  5. LEVODOPA BENSERAZIDE [Suspect]
     Active Substance: BENSERAZIDE\LEVODOPA
     Route: 065

REACTIONS (4)
  - Dyskinesia [Recovering/Resolving]
  - Loss of personal independence in daily activities [Unknown]
  - Rhabdomyolysis [Recovering/Resolving]
  - Therapeutic response shortened [Unknown]
